FAERS Safety Report 25169491 (Version 3)
Quarter: 2025Q2

REPORT INFORMATION
  Report Type: Spontaneous
  Country: GR (occurrence: GR)
  Receive Date: 20250407
  Receipt Date: 20250416
  Transmission Date: 20250716
  Serious: Yes (Hospitalization, Other)
  Sender: MYLAN
  Company Number: GR-CHEPLA-2025003818

PATIENT
  Age: 70 Year
  Sex: Female

DRUGS (11)
  1. FENTANYL [Suspect]
     Active Substance: FENTANYL
     Indication: Sedative therapy
  2. FENTANYL [Suspect]
     Active Substance: FENTANYL
     Indication: Sedation
  3. FENTANYL [Suspect]
     Active Substance: FENTANYL
     Indication: General anaesthesia
  4. MIDAZOLAM [Suspect]
     Active Substance: MIDAZOLAM
     Indication: Sedative therapy
  5. MIDAZOLAM [Suspect]
     Active Substance: MIDAZOLAM
     Indication: Sedation
  6. MIDAZOLAM [Suspect]
     Active Substance: MIDAZOLAM
     Indication: General anaesthesia
  7. PROPOFOL [Suspect]
     Active Substance: PROPOFOL
     Indication: Sedative therapy
  8. PROPOFOL [Suspect]
     Active Substance: PROPOFOL
     Indication: Sedation
  9. PROPOFOL [Suspect]
     Active Substance: PROPOFOL
     Indication: General anaesthesia
  10. NALOXONE [Concomitant]
     Active Substance: NALOXONE
  11. FLUMAZENIL [Concomitant]
     Active Substance: FLUMAZENIL

REACTIONS (4)
  - Cerebral ischaemia [Recovered/Resolved]
  - Transient global amnesia [Recovered/Resolved]
  - Ischaemia [Recovered/Resolved]
  - Off label use [Unknown]
